FAERS Safety Report 23481889 (Version 1)
Quarter: 2024Q1

REPORT INFORMATION
  Report Type: Spontaneous
  Country: US (occurrence: None)
  Receive Date: 20240203
  Receipt Date: 20240203
  Transmission Date: 20240410
  Serious: Yes (Disabling)
  Sender: FDA-Public Use
  Company Number: None

PATIENT
  Age: 56 Year
  Sex: Female
  Weight: 81 kg

DRUGS (11)
  1. QULIPTA [Suspect]
     Active Substance: ATOGEPANT
     Indication: Migraine prophylaxis
     Dosage: OTHER QUANTITY : 1 TABLET(S);?FREQUENCY : DAILY;?
     Route: 048
     Dates: start: 20231210, end: 20231217
  2. DESVENLAFAXINE [Concomitant]
     Active Substance: DESVENLAFAXINE
  3. BUPROPION [Concomitant]
     Active Substance: BUPROPION
  4. LEVOTHYROXINE [Concomitant]
     Active Substance: LEVOTHYROXINE\LEVOTHYROXINE SODIUM
  5. LEVOTHYROXINE [Concomitant]
     Active Substance: LEVOTHYROXINE\LEVOTHYROXINE SODIUM
  6. NADOLOL [Concomitant]
     Active Substance: NADOLOL
  7. ATORVASTATIN [Concomitant]
     Active Substance: ATORVASTATIN
  8. POTASSIUM [Concomitant]
     Active Substance: POTASSIUM
  9. CITRATE [Concomitant]
     Active Substance: CITRIC ACID MONOHYDRATE
  10. Merformin [Concomitant]
  11. VITAMIN D [Concomitant]
     Active Substance: VITAMIN D NOS

REACTIONS (5)
  - Depression [None]
  - Suicidal ideation [None]
  - Anxiety [None]
  - Therapy cessation [None]
  - Loss of personal independence in daily activities [None]

NARRATIVE: CASE EVENT DATE: 20231210
